FAERS Safety Report 9630558 (Version 4)
Quarter: 2013Q4

REPORT INFORMATION
  Report Type: Report from Study
  Country: CA (occurrence: CA)
  Receive Date: 20131018
  Receipt Date: 20131209
  Transmission Date: 20140711
  Serious: Yes (Death, Hospitalization, Other)
  Sender: FDA-Public Use
  Company Number: PHHY2011CA36032

PATIENT
  Age: 47 Year
  Sex: Female

DRUGS (4)
  1. SANDOSTATIN LAR [Suspect]
     Indication: NEUROENDOCRINE TUMOUR
     Dosage: 30 MG, EVERY 4 WEEKS
     Route: 030
     Dates: start: 20110316
  2. SANDOSTATIN LAR [Suspect]
     Dosage: 60 MG, EVERY 4 WEEKS
     Route: 030
  3. SANDOSTATIN LAR [Suspect]
     Dosage: 30 MG, EVERY 4 WEEKS
     Route: 030
  4. SANDOSTATIN LAR [Suspect]
     Dosage: 60 MG, EVERY 4 WEEKS
     Route: 030
     Dates: start: 20131011

REACTIONS (27)
  - Death [Fatal]
  - Pain [Unknown]
  - Abdominal pain upper [Unknown]
  - Neoplasm [Not Recovered/Not Resolved]
  - Chest pain [Recovering/Resolving]
  - Musculoskeletal pain [Recovering/Resolving]
  - Neck pain [Recovering/Resolving]
  - Musculoskeletal chest pain [Recovering/Resolving]
  - Hepatic cancer [Unknown]
  - Breast pain [Recovering/Resolving]
  - Abdominal pain [Recovering/Resolving]
  - Blood pressure increased [Unknown]
  - Abdominal distension [Recovering/Resolving]
  - Hypotension [Unknown]
  - Arthralgia [Recovering/Resolving]
  - Hypophagia [Unknown]
  - Back pain [Recovering/Resolving]
  - Weight decreased [Unknown]
  - Abasia [Unknown]
  - Blood sodium decreased [Unknown]
  - Movement disorder [Unknown]
  - Fatigue [Unknown]
  - Asthenia [Unknown]
  - Nausea [Unknown]
  - Diarrhoea [Recovered/Resolved]
  - Vomiting [Recovering/Resolving]
  - Decreased appetite [Unknown]
